FAERS Safety Report 6347294-3 (Version None)
Quarter: 2009Q3

REPORT INFORMATION
  Report Type: 
  Country: None (occurrence: None)
  Receive Date: 20090910
  Receipt Date: 20090107
  Transmission Date: 20100115
  Serious: Yes (Other)
  Sender: FDA-Public Use
  Company Number: PHHY2009JP36876

PATIENT
  Sex: Male

DRUGS (1)
  1. GLEEVEC [Suspect]
     Indication: CHRONIC MYELOID LEUKAEMIA
     Dosage: 1 TABLET PER DAY
     Route: 048

REACTIONS (4)
  - DEPRESSED MOOD [None]
  - EATING DISORDER [None]
  - SUICIDAL IDEATION [None]
  - WEIGHT DECREASED [None]
